FAERS Safety Report 10052962 (Version 1)
Quarter: 2014Q2

REPORT INFORMATION
  Report Type: Spontaneous
  Country: US (occurrence: US)
  Receive Date: 20140402
  Receipt Date: 20140402
  Transmission Date: 20141212
  Serious: No
  Sender: FDA-Public Use
  Company Number: US-MALLINCKRODT-T201401685

PATIENT
  Sex: 0

DRUGS (2)
  1. METHYLPHENIDATE HYDROCHLORIDE EXTENDED RELEASE TABLETS [Suspect]
     Indication: PRODUCT USED FOR UNKNOWN INDICATION
     Dosage: 27 MG, UNK
     Route: 065
  2. CONCERTA [Concomitant]
     Indication: PRODUCT USED FOR UNKNOWN INDICATION
     Dosage: 54 MG, UNK

REACTIONS (3)
  - Hunger [Unknown]
  - Mood altered [Unknown]
  - Drug effect decreased [Unknown]
